FAERS Safety Report 12722639 (Version 2)
Quarter: 2016Q4

REPORT INFORMATION
  Report Type: Spontaneous
  Country: JP (occurrence: JP)
  Receive Date: 20160907
  Receipt Date: 20161007
  Transmission Date: 20170207
  Serious: No
  Sender: FDA-Public Use
  Company Number: JP-ABBVIE-16P-087-1720446-00

PATIENT
  Age: 81 Year
  Sex: Female
  Weight: 36.1 kg

DRUGS (2)
  1. LIPACREON [Suspect]
     Active Substance: PANCRELIPASE
     Indication: DERMATITIS
     Dosage: SACHET
     Route: 048
     Dates: start: 20160629, end: 20160802
  2. PRAVASTATIN. [Concomitant]
     Active Substance: PRAVASTATIN
     Indication: PRODUCT USED FOR UNKNOWN INDICATION
     Route: 048

REACTIONS (1)
  - Seborrhoeic dermatitis [Recovered/Resolved]

NARRATIVE: CASE EVENT DATE: 20160720
